FAERS Safety Report 9909890 (Version 2)
Quarter: 2014Q1

REPORT INFORMATION
  Report Type: Spontaneous
  Country: US (occurrence: US)
  Receive Date: 20140219
  Receipt Date: 20140219
  Transmission Date: 20141002
  Serious: No
  Sender: FDA-Public Use
  Company Number: US-GILEAD-2012-0053001

PATIENT
  Sex: Female

DRUGS (3)
  1. LETAIRIS [Suspect]
     Indication: PRODUCT USED FOR UNKNOWN INDICATION
     Dosage: 10 MG, UNK
     Route: 048
     Dates: start: 20110708
  2. LETAIRIS [Suspect]
     Dosage: UNK
     Route: 048
  3. ADCIRCA [Concomitant]

REACTIONS (2)
  - Flushing [Unknown]
  - Nasal congestion [Unknown]
